FAERS Safety Report 9700115 (Version 2)
Quarter: 2014Q1

REPORT INFORMATION
  Report Type: Spontaneous
  Country: CH (occurrence: CH)
  Receive Date: 20131121
  Receipt Date: 20140312
  Transmission Date: 20141002
  Serious: Yes (Hospitalization)
  Sender: FDA-Public Use
  Company Number: CH-ROCHE-1304430

PATIENT
  Age: 38 Year
  Sex: Female
  Weight: 58 kg

DRUGS (6)
  1. ACTEMRA [Suspect]
     Indication: ARTHRALGIA
     Route: 042
     Dates: start: 201306, end: 201308
  2. LEFLUNOMIDE [Concomitant]
     Route: 048
  3. CELEBREX [Concomitant]
     Route: 065
  4. PLAQUENIL [Concomitant]
     Route: 065
  5. HYDROXYCHLOROQUINE SULFATE [Concomitant]
  6. CELECOXIB [Concomitant]

REACTIONS (4)
  - Lyme disease [Recovering/Resolving]
  - Headache [Not Recovered/Not Resolved]
  - Ophthalmoplegia [Recovered/Resolved]
  - Facial paresis [Recovering/Resolving]
